FAERS Safety Report 4681025-8 (Version None)
Quarter: 2005Q2

REPORT INFORMATION
  Report Type: 
  Country: None (occurrence: None)
  Receive Date: 20050601
  Receipt Date: 20050519
  Transmission Date: 20051028
  Serious: Yes (Hospitalization)
  Sender: FDA-Public Use
  Company Number: 2005077148

PATIENT
  Age: 47 Year
  Sex: Female
  Weight: 79.8331 kg

DRUGS (2)
  1. DETROL LA [Suspect]
     Indication: INCONTINENCE
     Dosage: 4 MG (2 MG, 2 IN 1 D), ORAL
     Route: 048
     Dates: start: 20030101
  2. LASIX [Concomitant]

REACTIONS (3)
  - CEREBROVASCULAR ACCIDENT [None]
  - DIABETES MELLITUS [None]
  - POOR QUALITY DRUG ADMINISTERED [None]
